FAERS Safety Report 7285166-0 (Version None)
Quarter: 2011Q1

REPORT INFORMATION
  Report Type: 
  Country: None (occurrence: None)
  Receive Date: 20110204
  Receipt Date: 20110204
  Transmission Date: 20110831
  Serious: Yes (Other)
  Sender: FDA-Public Use
  Company Number: None

PATIENT
  Sex: Female
  Weight: 61.2356 kg

DRUGS (1)
  1. TOPROL-XL [Suspect]
     Indication: TACHYCARDIA
     Dosage: 25 MG EVERY DAY
     Dates: start: 20080101, end: 20101001

REACTIONS (12)
  - DIZZINESS [None]
  - VERTIGO [None]
  - CONFUSIONAL STATE [None]
  - PAIN IN EXTREMITY [None]
  - BURNING SENSATION [None]
  - ASTHENIA [None]
  - CYANOSIS [None]
  - PERIPHERAL COLDNESS [None]
  - AMNESIA [None]
  - ARTHRALGIA [None]
  - SYNCOPE [None]
  - HEADACHE [None]
